FAERS Safety Report 9247757 (Version 1)
Quarter: 2013Q1

REPORT INFORMATION
  Report Type: Spontaneous
  Country: US (occurrence: None)
  Receive Date: 20130305
  Receipt Date: 20130305
  Transmission Date: 20140127
  Serious: Yes (Hospitalization, Other)
  Sender: FDA-Public Use
  Company Number: 163-21880-12051431

PATIENT
  Age: 80 Year
  Sex: Male

DRUGS (6)
  1. REVLIMID [Suspect]
     Indication: PLASMA CELL MYELOMA
     Dates: start: 2009
  2. COUMADIN (WARFARIN SODIUM) [Concomitant]
  3. DIGOXEN (DIGOXIN) [Concomitant]
  4. OXYCONTIN (OXYCODONE HYDROCHLORIDE) [Concomitant]
  5. VELCADE (BORTEZOMIB) [Concomitant]
  6. ANTIVIRAL (ANTIVIRALS) [Concomitant]

REACTIONS (3)
  - Pneumonia [None]
  - Atrial fibrillation [None]
  - Neutropenia [None]
